FAERS Safety Report 25642548 (Version 1)
Quarter: 2025Q3

REPORT INFORMATION
  Report Type: Other
  Country: CN (occurrence: CN)
  Receive Date: 20250805
  Receipt Date: 20250805
  Transmission Date: 20251021
  Serious: Yes (Other)
  Sender: AKESO BIOPHARMA CO., LTD.
  Company Number: CN-Akeso Biopharma Co., Ltd.-2181832

PATIENT
  Age: 62 Year
  Sex: Male

DRUGS (3)
  1. PENPULIMAB-KCQX [Suspect]
     Active Substance: PENPULIMAB-KCQX
     Indication: Squamous cell carcinoma of the oral cavity
  2. PACLITAXEL [Concomitant]
     Active Substance: PACLITAXEL
  3. CISPLATIN [Concomitant]
     Active Substance: CISPLATIN

REACTIONS (1)
  - Cytokine release syndrome [Unknown]
